FAERS Safety Report 15888390 (Version 1)
Quarter: 2019Q1

REPORT INFORMATION
  Report Type: Spontaneous
  Country: US (occurrence: US)
  Receive Date: 20190130
  Receipt Date: 20190130
  Transmission Date: 20190417
  Serious: No
  Sender: FDA-Public Use
  Company Number: None

PATIENT
  Age: 61 Year
  Sex: Female

DRUGS (6)
  1. METHOTREXATE 2.5MG TABS [Concomitant]
     Dates: start: 20180220
  2. PROAIR HFA 90MCG INHALER [Concomitant]
     Dates: start: 20180531
  3. SYNTHROID 0.125MCG TABS [Concomitant]
     Dates: start: 20180301
  4. ACTEMRA [Suspect]
     Active Substance: TOCILIZUMAB
     Indication: RHEUMATOID ARTHRITIS
     Dosage: ?          OTHER FREQUENCY:WEEKLY;?
     Route: 058
     Dates: start: 20181120
  5. BYSTOLIC 10MG TABS [Concomitant]
     Dates: start: 20180814
  6. HYDROXYZINE HCL 50MG TABS [Concomitant]
     Dates: start: 20180210

REACTIONS (1)
  - Electrocardiogram ST-T segment elevation [None]

NARRATIVE: CASE EVENT DATE: 20190117
